FAERS Safety Report 19268735 (Version 1)
Quarter: 2021Q2

REPORT INFORMATION
  Report Type: Spontaneous
  Country: US (occurrence: US)
  Receive Date: 20210517
  Receipt Date: 20210517
  Transmission Date: 20210717
  Serious: Yes (Disabling)
  Sender: FDA-Public Use
  Company Number: None

PATIENT
  Age: 62 Year
  Sex: Female
  Weight: 105.75 kg

DRUGS (2)
  1. CPAP [Concomitant]
     Active Substance: DEVICE
  2. ARMOUR THYROID [Suspect]
     Active Substance: THYROID, PORCINE
     Indication: HYPOTHYROIDISM
     Dosage: ?          QUANTITY:5 TABLET(S);?
     Route: 048
     Dates: start: 19900901

REACTIONS (2)
  - Asthenia [None]
  - Fatigue [None]

NARRATIVE: CASE EVENT DATE: 20210515
